FAERS Safety Report 9911688 (Version 7)
Quarter: 2014Q3

REPORT INFORMATION
  Report Type: Spontaneous
  Country: US (occurrence: US)
  Receive Date: 20140219
  Receipt Date: 20140716
  Transmission Date: 20150326
  Serious: Yes (Hospitalization, Disabling, Other)
  Sender: FDA-Public Use
  Company Number: US-009507513-1203USA02854

PATIENT
  Sex: Female
  Weight: 63.49 kg

DRUGS (2)
  1. FOSAMAX [Suspect]
     Active Substance: ALENDRONATE SODIUM
     Indication: OSTEOPOROSIS
     Dosage: 70 MG, QW
     Route: 048
  2. FOSAMAX [Suspect]
     Active Substance: ALENDRONATE SODIUM
     Indication: OSTEOPOROSIS
     Route: 048

REACTIONS (32)
  - Hip arthroplasty [Unknown]
  - Disability [Not Recovered/Not Resolved]
  - Internal fixation of fracture [Unknown]
  - Hip arthroplasty [Recovered/Resolved]
  - Hand fracture [Unknown]
  - Periprosthetic fracture [Recovered/Resolved]
  - Femur fracture [Unknown]
  - Intramedullary rod insertion [Unknown]
  - Intramedullary rod insertion [Unknown]
  - Adverse event [Unknown]
  - Essential hypertension [Unknown]
  - Femoral neck fracture [Unknown]
  - Fracture nonunion [Recovered/Resolved]
  - Hypercholesterolaemia [Unknown]
  - Anaemia [Unknown]
  - Hip arthroplasty [Unknown]
  - Periprosthetic fracture [Unknown]
  - Device failure [Unknown]
  - Fall [Unknown]
  - Atrial fibrillation [Unknown]
  - Bladder operation [Unknown]
  - Oophorectomy [Unknown]
  - Fracture nonunion [Unknown]
  - Femur fracture [Unknown]
  - Foot fracture [Unknown]
  - Cholecystectomy [Unknown]
  - Transfusion [Unknown]
  - Fall [Unknown]
  - Coronary artery disease [Unknown]
  - Psoriasis [Unknown]
  - Headache [Unknown]
  - Open reduction of fracture [Unknown]

NARRATIVE: CASE EVENT DATE: 1995
